FAERS Safety Report 16143783 (Version 3)
Quarter: 2019Q2

REPORT INFORMATION
  Report Type: Report from Study
  Country: AR (occurrence: AR)
  Receive Date: 20190401
  Receipt Date: 20190510
  Transmission Date: 20190711
  Serious: Yes (Death, Hospitalization)
  Sender: FDA-Public Use
  Company Number: AR-INCYTE CORPORATION-2019IN003104

PATIENT

DRUGS (1)
  1. JAKAVI [Suspect]
     Active Substance: RUXOLITINIB
     Indication: MYELOFIBROSIS
     Dosage: 40 MG, QD (DAILY)
     Route: 048
     Dates: start: 20181205

REACTIONS (5)
  - Myelofibrosis [Fatal]
  - Aphasia [Unknown]
  - General physical condition abnormal [Fatal]
  - Pneumonia [Fatal]
  - Leukaemia [Fatal]

NARRATIVE: CASE EVENT DATE: 20190113
